FAERS Safety Report 21245790 (Version 1)
Quarter: 2022Q3

REPORT INFORMATION
  Report Type: Other
  Country: CA (occurrence: None)
  Receive Date: 20220824
  Receipt Date: 20220824
  Transmission Date: 20221026
  Serious: Yes (Other)
  Sender: FDA-Public Use
  Company Number: CA-ROCHE-3163874

PATIENT
  Age: 64 Year
  Sex: Male

DRUGS (11)
  1. RITUXIMAB [Suspect]
     Active Substance: RITUXIMAB
     Indication: Central nervous system lymphoma
     Route: 065
  2. METHOTREXATE SODIUM [Suspect]
     Active Substance: METHOTREXATE SODIUM
     Indication: Central nervous system lymphoma
     Route: 065
  3. VINCRISTINE [Suspect]
     Active Substance: VINCRISTINE
     Indication: Central nervous system lymphoma
     Route: 065
  4. CYTARABINE [Suspect]
     Active Substance: CYTARABINE
     Indication: Central nervous system lymphoma
     Dosage: FOR 4 WEEKS
     Route: 037
  5. PROCARBAZINE [Suspect]
     Active Substance: PROCARBAZINE
     Indication: Central nervous system lymphoma
     Route: 065
  6. ETOPOSIDE [Suspect]
     Active Substance: ETOPOSIDE
     Indication: Central nervous system lymphoma
     Dosage: FOR 4 WEEKS
     Route: 065
  7. PREDNISONE [Concomitant]
     Active Substance: PREDNISONE
     Dates: end: 201712
  8. IBRUTINIB [Concomitant]
     Active Substance: IBRUTINIB
  9. THIOTEPA [Concomitant]
     Active Substance: THIOTEPA
  10. BUSULFAN [Concomitant]
     Active Substance: BUSULFAN
  11. MELPHALAN [Concomitant]
     Active Substance: MELPHALAN

REACTIONS (3)
  - Disease progression [Recovered/Resolved]
  - Drug ineffective [Unknown]
  - Off label use [Unknown]
